FAERS Safety Report 19163199 (Version 2)
Quarter: 2021Q2

REPORT INFORMATION
  Report Type: Spontaneous
  Country: US (occurrence: US)
  Receive Date: 20210421
  Receipt Date: 20210622
  Transmission Date: 20210717
  Serious: Yes (Other)
  Sender: FDA-Public Use
  Company Number: US-TEVA-2021-US-1902744

PATIENT
  Age: 60 Year
  Sex: Female

DRUGS (4)
  1. CHLORAMBUCIL [Suspect]
     Active Substance: CHLORAMBUCIL
     Dosage: 2MG EVERY OTHER DAY
     Route: 065
  2. CHLORAMBUCIL [Suspect]
     Active Substance: CHLORAMBUCIL
     Dosage: 2MG EVERY 3 DAYS; AFTER DEXAMETHASONE IMPLANT; TITRATING THE DOSE BASED ON WBC FOR SEVENTEEN MONTHS
     Route: 065
  3. PREDNISONE. [Suspect]
     Active Substance: PREDNISONE
     Indication: SERPIGINOUS CHOROIDITIS
     Dosage: 2 MILLIGRAM DAILY;
     Route: 048
  4. CHLORAMBUCIL [Suspect]
     Active Substance: CHLORAMBUCIL
     Indication: SERPIGINOUS CHOROIDITIS
     Dosage: CHLORAMBUCIL WAS TITRATED BASED ON HER WHITE BLOOD CELL (WBC) COUNT.
     Route: 065

REACTIONS (2)
  - Drug ineffective [Unknown]
  - White blood cell count decreased [Recovering/Resolving]
